FAERS Safety Report 5632537-1 (Version None)
Quarter: 2008Q1

REPORT INFORMATION
  Report Type: 
  Country: None (occurrence: None)
  Receive Date: 20080220
  Receipt Date: 20080208
  Transmission Date: 20080703
  Serious: Yes (Other)
  Sender: FDA-Public Use
  Company Number: US-PFIZER INC-2008012899

PATIENT
  Sex: Female
  Weight: 61.2 kg

DRUGS (2)
  1. LYRICA [Suspect]
     Indication: ABDOMINAL OPERATION
     Dates: start: 20071201, end: 20071220
  2. ORAL CONTRACEPTIVE NOS [Concomitant]

REACTIONS (1)
  - MICTURITION DISORDER [None]
